FAERS Safety Report 6727384-3 (Version None)
Quarter: 2010Q2

REPORT INFORMATION
  Report Type: 
  Country: None (occurrence: None)
  Receive Date: 20100517
  Receipt Date: 20100512
  Transmission Date: 20101027
  Serious: Yes (Death, Other)
  Sender: FDA-Public Use
  Company Number: PHHY2010JP10866

PATIENT
  Sex: Male
  Weight: 57 kg

DRUGS (4)
  1. DIOVAN [Suspect]
     Dosage: 80 MG, QD
     Route: 048
     Dates: start: 20071221, end: 20091108
  2. DIOVAN [Suspect]
     Dosage: 40 MG, QD
     Route: 048
     Dates: start: 20091109
  3. LOXOPROFEN SODIUM [Concomitant]
     Dosage: 2 DF, UNK
     Dates: start: 20071221
  4. ETIZOLAM [Concomitant]
     Dosage: 1 MG, UNK
     Route: 048
     Dates: start: 20071221

REACTIONS (4)
  - BLOOD URIC ACID INCREASED [None]
  - BRADYCARDIA [None]
  - DEATH [None]
  - HYPOTENSION [None]
